FAERS Safety Report 9393328 (Version 3)
Quarter: 2013Q3

REPORT INFORMATION
  Report Type: Report from Study
  Country: BR (occurrence: BR)
  Receive Date: 20130710
  Receipt Date: 20130906
  Transmission Date: 20140515
  Serious: Yes (Other)
  Sender: FDA-Public Use
  Company Number: BR-ROCHE-675336

PATIENT
  Age: 22 Year
  Sex: Female
  Weight: 50 kg

DRUGS (11)
  1. MABTHERA [Suspect]
     Indication: MIXED CONNECTIVE TISSUE DISEASE
     Dosage: DOSE: 100MG/ 10ML; FORM: INFUSION, DATE OF LAST INFUSION:21/DEC/2012.
     Route: 065
     Dates: start: 20091101, end: 20121221
  2. VODOL [Suspect]
     Indication: FUNGAL INFECTION
     Route: 065
  3. PANTOPRAZOLE [Concomitant]
  4. PREDNISONE [Concomitant]
     Route: 065
  5. OXANDROLONE [Concomitant]
     Route: 065
  6. AZATHIOPRINE [Concomitant]
     Route: 065
  7. COPPER [Concomitant]
     Dosage: CHELATED COPPER
     Route: 065
  8. CITONEURIN [Concomitant]
  9. CALCIUM GLUCONATE [Concomitant]
     Route: 065
  10. NORIPURUM FOLICO [Concomitant]
     Route: 065
  11. COLECALCIFEROL [Concomitant]

REACTIONS (13)
  - Blood pressure decreased [Recovered/Resolved]
  - Lung infection [Recovered/Resolved]
  - Dizziness [Recovered/Resolved]
  - Presyncope [Recovered/Resolved]
  - Decreased appetite [Unknown]
  - Nausea [Recovered/Resolved]
  - Malaise [Recovered/Resolved]
  - Dry skin [Recovered/Resolved]
  - Skin exfoliation [Recovered/Resolved]
  - Fungal infection [Recovering/Resolving]
  - Immunodeficiency [Unknown]
  - Influenza [Unknown]
  - Hiatus hernia [Unknown]
